FAERS Safety Report 9376371 (Version 1)
Quarter: 2013Q3

REPORT INFORMATION
  Report Type: Spontaneous
  Country: US (occurrence: US)
  Receive Date: 20130701
  Receipt Date: 20130701
  Transmission Date: 20140515
  Serious: No
  Sender: FDA-Public Use
  Company Number: US-JNJFOC-20130603383

PATIENT
  Age: 34 Year
  Sex: Female
  Weight: 43.09 kg

DRUGS (2)
  1. INVEGA SUSTENNA [Suspect]
     Indication: PRODUCT USED FOR UNKNOWN INDICATION
     Route: 030
     Dates: start: 201204
  2. ZETIA [Concomitant]
     Route: 065

REACTIONS (2)
  - Blood prolactin increased [Unknown]
  - Weight increased [Unknown]
